FAERS Safety Report 14193687 (Version 1)
Quarter: 2017Q4

REPORT INFORMATION
  Report Type: Spontaneous
  Country: TR (occurrence: TR)
  Receive Date: 20171115
  Receipt Date: 20171115
  Transmission Date: 20180321
  Serious: Yes (Other)
  Sender: FDA-Public Use
  Company Number: TR-ALLERGAN-1761244US

PATIENT
  Age: 33 Year
  Sex: Female

DRUGS (1)
  1. LEVONORGESTREL UNK [Suspect]
     Active Substance: LEVONORGESTREL
     Indication: MENORRHAGIA
     Dosage: 52 MG, SINGLE
     Route: 015

REACTIONS (14)
  - Urinary tract infection [Unknown]
  - Erythema [Recovering/Resolving]
  - Vulvovaginal adhesion [Recovered/Resolved]
  - Amenorrhoea [Recovered/Resolved]
  - Skin erosion [Recovering/Resolving]
  - Dermatitis bullous [Recovering/Resolving]
  - Skin lesion [Recovering/Resolving]
  - Blepharophimosis [Unknown]
  - Blister [Recovering/Resolving]
  - Stevens-Johnson syndrome [Unknown]
  - Xerophthalmia [Unknown]
  - Influenza like illness [Unknown]
  - Pyrexia [Unknown]
  - Intentional product use issue [Unknown]
